FAERS Safety Report 8760412 (Version 2)
Quarter: 2012Q4

REPORT INFORMATION
  Report Type: Spontaneous
  Country: US (occurrence: None)
  Receive Date: 20120822
  Receipt Date: 20121102
  Transmission Date: 20130627
  Serious: Yes (Hospitalization, Other)
  Sender: FDA-Public Use
  Company Number: 2012-002156

PATIENT
  Age: 78 Year
  Sex: Female
  Weight: 63 kg

DRUGS (14)
  1. ACTONEL [Suspect]
     Indication: OSTEOPOROSIS
     Route: 048
     Dates: start: 20091218, end: 2010
  2. FOSAMAX [Suspect]
     Indication: OSTEOPOROSIS
     Route: 048
     Dates: start: 20020320, end: 200910
  3. FOSAMAX [Suspect]
     Indication: OSTEOPOROSIS
     Route: 048
     Dates: start: 19961023, end: 20020320
  4. LIPITOR (ATORVASTATIN CALCIUM) [Concomitant]
  5. DURAGESIC    /00174601/ [Concomitant]
  6. PREMPRO (ESTROGENS CONJUGATED, MEDROXYPROGESTERONE ACETATE) [Concomitant]
  7. LIDODERM (LIDOCAINE) [Concomitant]
  8. CELEBREX (CELECOXIB) [Concomitant]
  9. MICARDIS (TELMISARTAN) [Concomitant]
  10. ASPIRIN (E.C.) (ACETYLSALICYLIC ACID) [Concomitant]
  11. OLOPATADINE (OLOPATADINE) [Concomitant]
  12. GABAPENTIN (GABAPENTIN) [Concomitant]
  13. CALCIUM CARBONATE W/VITAMIN D   /00944201/ (CALCIUM CARBONATE, COLECALCIFEROL) [Concomitant]
  14. OMEPRAZOLE (OMEPRAZOLE) [Concomitant]

REACTIONS (5)
  - Femur fracture [None]
  - Stress fracture [None]
  - Groin pain [None]
  - Arthralgia [None]
  - Bone pain [None]
